FAERS Safety Report 9806166 (Version 1)
Quarter: 2014Q1

REPORT INFORMATION
  Report Type: Spontaneous
  Country: US (occurrence: US)
  Receive Date: 20140109
  Receipt Date: 20140109
  Transmission Date: 20141002
  Serious: No
  Sender: FDA-Public Use
  Company Number: US-PFIZER INC-2014004212

PATIENT
  Age: 93 Year
  Sex: Female

DRUGS (10)
  1. LIPITOR [Suspect]
     Dosage: UNK
  2. CIPROFLOXACIN [Suspect]
     Dosage: UNK
  3. ADALAT [Suspect]
     Dosage: UNK
  4. LASIX [Suspect]
     Dosage: UNK
  5. LOVASTATIN [Suspect]
     Dosage: UNK
  6. TIAZAC [Suspect]
     Dosage: UNK
  7. VERELAN [Suspect]
     Dosage: UNK
  8. TEKTURNA HCT [Suspect]
     Dosage: UNK
  9. THIAZIDE [Suspect]
     Dosage: UNK
  10. NEXAVAR [Suspect]
     Dosage: UNK

REACTIONS (1)
  - Drug hypersensitivity [Unknown]
